FAERS Safety Report 7400006-4 (Version None)
Quarter: 2011Q2

REPORT INFORMATION
  Report Type: 
  Country: None (occurrence: None)
  Receive Date: 20110407
  Receipt Date: 20110325
  Transmission Date: 20111010
  Serious: Yes (Other)
  Sender: FDA-Public Use
  Company Number: PHHY2011FR18048

PATIENT
  Sex: Female
  Weight: 96 kg

DRUGS (5)
  1. ACETAMINOPHEN [Concomitant]
  2. ACLASTA [Suspect]
     Indication: OSTEITIS DEFORMANS
     Dosage: 5 MG,
     Route: 042
     Dates: start: 20110213
  3. COTAREG [Concomitant]
  4. TANAKAN [Concomitant]
  5. LEVOTHYROX [Concomitant]
     Dosage: 125 MCG

REACTIONS (7)
  - VISUAL ACUITY REDUCED [None]
  - EYE PAIN [None]
  - EYE OEDEMA [None]
  - DISORDER OF ORBIT [None]
  - SINUSITIS [None]
  - CELLULITIS ORBITAL [None]
  - EXOPHTHALMOS [None]
